FAERS Safety Report 24764815 (Version 1)
Quarter: 2024Q4

REPORT INFORMATION
  Report Type: Spontaneous
  Country: US (occurrence: US)
  Receive Date: 20241223
  Receipt Date: 20241223
  Transmission Date: 20250115
  Serious: No
  Sender: ALCON
  Company Number: US-ALCON LABORATORIES-ALC2024US003370

PATIENT
  Sex: Female

DRUGS (1)
  1. EYSUVIS [Suspect]
     Active Substance: LOTEPREDNOL ETABONATE
     Indication: Product used for unknown indication
     Dosage: 1 DROP IN EACH EYE TWICE A DAY FOR 4 WEEKS
     Route: 047

REACTIONS (4)
  - Eye pruritus [Recovered/Resolved]
  - Eye swelling [Recovered/Resolved]
  - Hypersensitivity [Recovered/Resolved]
  - Eye pain [Recovered/Resolved]
